FAERS Safety Report 19920107 (Version 2)
Quarter: 2021Q4

REPORT INFORMATION
  Report Type: Spontaneous
  Country: JP (occurrence: JP)
  Receive Date: 20211005
  Receipt Date: 20211019
  Transmission Date: 20220303
  Serious: Yes (Death, Hospitalization)
  Sender: FDA-Public Use
  Company Number: JP-ELI_LILLY_AND_COMPANY-JP202109008647AA

PATIENT
  Age: 74 Year
  Sex: Male
  Weight: 59 kg

DRUGS (28)
  1. ALIMTA [Suspect]
     Active Substance: PEMETREXED DISODIUM
     Indication: Lung adenocarcinoma
     Dosage: 800 MG, UNKNOWN
     Route: 041
     Dates: start: 20201028, end: 20210531
  2. KEYTRUDA [Suspect]
     Active Substance: PEMBROLIZUMAB
     Indication: Lung adenocarcinoma
     Dosage: 200 MG, UNKNOWN
     Route: 065
     Dates: start: 20201028, end: 20210531
  3. CISPLATIN [Suspect]
     Active Substance: CISPLATIN
     Indication: Lung adenocarcinoma
     Dosage: UNK
     Route: 065
     Dates: start: 20201031, end: 20210120
  4. CYCLOPHOSPHAMIDE [Suspect]
     Active Substance: CYCLOPHOSPHAMIDE
     Indication: Interstitial lung disease
     Dosage: 500 MG, DAILY
     Route: 041
     Dates: start: 20210626, end: 20210626
  5. CYCLOPHOSPHAMIDE [Suspect]
     Active Substance: CYCLOPHOSPHAMIDE
     Dosage: 500 MG, DAILY
     Route: 041
     Dates: start: 20210709, end: 20210709
  6. CYCLOPHOSPHAMIDE [Suspect]
     Active Substance: CYCLOPHOSPHAMIDE
     Dosage: 500 MG, DAILY
     Route: 041
     Dates: start: 20210723, end: 20210723
  7. SULFAMETHOXAZOLE\TRIMETHOPRIM [Suspect]
     Active Substance: SULFAMETHOXAZOLE\TRIMETHOPRIM
     Indication: Antifungal prophylaxis
     Dosage: 1 G, DAILY
     Route: 048
     Dates: start: 20210611, end: 20210625
  8. ATOVAQUONE [Suspect]
     Active Substance: ATOVAQUONE
     Indication: Antifungal prophylaxis
     Dosage: UNK
     Route: 048
     Dates: start: 20210626, end: 20210820
  9. AMLODIPINE BESYLATE [Concomitant]
     Active Substance: AMLODIPINE BESYLATE
     Route: 048
  10. PIOGLITAZONE [Concomitant]
     Active Substance: PIOGLITAZONE
     Route: 048
  11. JANUVIA [Concomitant]
     Active Substance: SITAGLIPTIN PHOSPHATE
     Route: 048
  12. ENALAPRIL MALEATE [Concomitant]
     Active Substance: ENALAPRIL MALEATE
     Route: 048
  13. METGLUCO [Concomitant]
     Active Substance: METFORMIN HYDROCHLORIDE
     Route: 048
  14. PANVITAN [ASCORBIC ACID;CALCIUM PANTOTHENATE; [Concomitant]
     Route: 048
  15. INSULIN GLARGINE [Concomitant]
     Active Substance: INSULIN GLARGINE
  16. FUNGIZONE [Concomitant]
     Active Substance: AMPHOTERICIN B
  17. ZOLPIDEM TARTRATE [Concomitant]
     Active Substance: ZOLPIDEM TARTRATE
     Route: 048
  18. MAGNESIUM OXIDE [Concomitant]
     Active Substance: MAGNESIUM OXIDE
     Route: 048
  19. LANSOPRAZOLE [Concomitant]
     Active Substance: LANSOPRAZOLE
     Route: 048
  20. CARBOCYSTEINE [Concomitant]
     Active Substance: CARBOCYSTEINE
     Route: 048
  21. LUNESTA [Concomitant]
     Active Substance: ESZOPICLONE
     Route: 048
  22. CALONAL [Concomitant]
     Active Substance: ACETAMINOPHEN
     Route: 048
  23. BELSOMRA [Concomitant]
     Active Substance: SUVOREXANT
     Route: 048
  24. GASTER [Concomitant]
     Active Substance: FAMOTIDINE
  25. MEROPENEM [Concomitant]
     Active Substance: MEROPENEM
  26. MINOCYCLINE HYDROCHLORIDE [Concomitant]
     Active Substance: MINOCYCLINE HYDROCHLORIDE
  27. FENTANYL CITRATE [Concomitant]
     Active Substance: FENTANYL CITRATE
  28. MIDAZOLAM [Concomitant]
     Active Substance: MIDAZOLAM

REACTIONS (3)
  - Drug-induced liver injury [Fatal]
  - Interstitial lung disease [Fatal]
  - Drug eruption [Unknown]

NARRATIVE: CASE EVENT DATE: 20210611
